FAERS Safety Report 8271168-4 (Version None)
Quarter: 2012Q2

REPORT INFORMATION
  Report Type: 
  Country: None (occurrence: None)
  Receive Date: 20120410
  Receipt Date: 20120329
  Transmission Date: 20120825
  Serious: Yes (Hospitalization)
  Sender: FDA-Public Use
  Company Number: DE-PFIZER INC-2012080375

PATIENT
  Age: 64 Year
  Sex: Male
  Weight: 74 kg

DRUGS (6)
  1. MIRTAZAPINE [Concomitant]
     Dosage: 30 MG, 1X/DAY
     Dates: start: 20120328
  2. SUNITINIB MALATE [Suspect]
     Dosage: DOSE ACCORDING TO PROTOCOL
     Dates: start: 20110429, end: 20120326
  3. ASPIRIN [Concomitant]
     Dosage: 100 MG, 1X/DAY
     Dates: start: 20110326
  4. OMEPRAZOLE [Concomitant]
     Dosage: 20 MG, 1X/DAY
     Dates: start: 20110617
  5. BISOPROLOL [Concomitant]
     Dosage: 2.5 MG, 1X/DAY
     Dates: start: 20050101
  6. LORAZEPAM [Concomitant]
     Dosage: 1 MG, 1X/DAY
     Dates: start: 20110609

REACTIONS (1)
  - CORONARY ARTERY DISEASE [None]
